FAERS Safety Report 25023580 (Version 1)
Quarter: 2025Q1

REPORT INFORMATION
  Report Type: Other
  Country: KR (occurrence: KR)
  Receive Date: 20250228
  Receipt Date: 20250228
  Transmission Date: 20250409
  Serious: Yes (Death, Other)
  Sender: NUVO PHARMACEUTICALS
  Company Number: KR-Nuvo Pharmaceuticals Inc-2171967

PATIENT
  Age: 40 Year
  Sex: Male

DRUGS (7)
  1. DIAZEPAM [Suspect]
     Active Substance: DIAZEPAM
     Indication: Product used for unknown indication
  2. SERTRALINE [Suspect]
     Active Substance: SERTRALINE HYDROCHLORIDE
  3. LITHIUM [Suspect]
     Active Substance: LITHIUM
  4. LORAZEPAM [Suspect]
     Active Substance: LORAZEPAM
  5. VALPROIC ACID [Suspect]
     Active Substance: VALPROIC ACID
  6. PALIPERIDONE [Suspect]
     Active Substance: PALIPERIDONE
  7. QUETIAPINE [Suspect]
     Active Substance: QUETIAPINE

REACTIONS (1)
  - Toxicity to various agents [Fatal]
